FAERS Safety Report 6338362-0 (Version None)
Quarter: 2009Q3

REPORT INFORMATION
  Report Type: 
  Country: None (occurrence: None)
  Receive Date: 20090901
  Receipt Date: 20090825
  Transmission Date: 20100115
  Serious: Yes (Hospitalization)
  Sender: FDA-Public Use
  Company Number: 2009009942

PATIENT
  Age: 71 Year
  Sex: Male
  Weight: 74.8435 kg

DRUGS (5)
  1. PROVIGIL [Suspect]
     Indication: SOMNOLENCE
     Dosage: (ONCE), ORAL; (1 IN 1 D), INTRAVENOUS
     Dates: start: 20090822, end: 20090822
  2. PROVIGIL [Suspect]
     Indication: SOMNOLENCE
     Dosage: (ONCE), ORAL; (1 IN 1 D), INTRAVENOUS
     Dates: start: 20090822, end: 20090824
  3. ZANTAC [Concomitant]
  4. UNKNOWN BLOOD THINNER (SODIUM CITRATE DIHYDRATE, WATER FOR INJECTION) [Concomitant]
  5. UNKNOWN LAXATIVE (SENNOSIDE A+B) [Concomitant]

REACTIONS (8)
  - AGITATION [None]
  - CONDITION AGGRAVATED [None]
  - CONFUSIONAL STATE [None]
  - IRRITABILITY [None]
  - PANIC ATTACK [None]
  - PRURITUS [None]
  - RASH [None]
  - SPEECH DISORDER [None]
